FAERS Safety Report 19589445 (Version 2)
Quarter: 2021Q3

REPORT INFORMATION
  Report Type: Spontaneous
  Country: US (occurrence: US)
  Receive Date: 20210721
  Receipt Date: 20210725
  Transmission Date: 20211014
  Serious: No
  Sender: FDA-Public Use
  Company Number: US-ELI_LILLY_AND_COMPANY-US202107008810

PATIENT
  Age: 34 Year
  Sex: Female
  Weight: 56.69 kg

DRUGS (7)
  1. ORENITRAM [Suspect]
     Active Substance: TREPROSTINIL
     Dosage: 0.25 MG, TID (STRENGTH 0.125 MG)
     Route: 048
  2. OPSUMIT [Suspect]
     Active Substance: MACITENTAN
     Indication: PRODUCT USED FOR UNKNOWN INDICATION
     Dosage: UNK UNK, UNKNOWN
  3. REMODULIN [Suspect]
     Active Substance: TREPROSTINIL
     Indication: PULMONARY ARTERIAL HYPERTENSION
     Dosage: UNK UNK, OTHER (50 NG/KG/MIN, CONTINUOUS)
     Route: 058
  4. ORENITRAM [Suspect]
     Active Substance: TREPROSTINIL
     Dosage: 0.25 MG, TID (STRENGTH 1.0 MG)
     Route: 048
  5. ORENITRAM [Suspect]
     Active Substance: TREPROSTINIL
     Dosage: 5 MG, EVERY 8 HRS
     Route: 048
     Dates: end: 20210617
  6. TADALAFIL. [Suspect]
     Active Substance: TADALAFIL
     Indication: PRODUCT USED FOR UNKNOWN INDICATION
     Dosage: UNK UNK, UNKNOWN
     Route: 065
  7. ORENITRAM [Suspect]
     Active Substance: TREPROSTINIL
     Indication: PULMONARY ARTERIAL HYPERTENSION
     Dosage: 0.25 MG, TID (STRENGTH 0.25 MG)
     Route: 048
     Dates: start: 20181120

REACTIONS (12)
  - Mass [Unknown]
  - Gastritis [Recovered/Resolved]
  - Feeling abnormal [Recovered/Resolved]
  - Pain [Unknown]
  - Vomiting [Recovered/Resolved]
  - Dyspnoea [Recovered/Resolved]
  - Heart rate increased [Recovered/Resolved]
  - Feeding disorder [Recovered/Resolved]
  - Cholecystitis [Recovered/Resolved]
  - Fatigue [Recovered/Resolved]
  - Hypersensitivity [Unknown]
  - Hypotension [Recovered/Resolved]

NARRATIVE: CASE EVENT DATE: 202106
